FAERS Safety Report 25398978 (Version 2)
Quarter: 2025Q2

REPORT INFORMATION
  Report Type: Spontaneous
  Country: US (occurrence: US)
  Receive Date: 20250605
  Receipt Date: 20250610
  Transmission Date: 20250716
  Serious: No
  Sender: MERCK SHARP & DOHME LLC
  Company Number: US-009507513-2292601

PATIENT
  Age: 92 Year
  Sex: Male

DRUGS (4)
  1. LAGEVRIO [Suspect]
     Active Substance: MOLNUPIRAVIR
     Indication: COVID-19 treatment
     Route: 048
     Dates: start: 20250530, end: 20250530
  2. LAGEVRIO [Suspect]
     Active Substance: MOLNUPIRAVIR
     Indication: COVID-19 treatment
     Dosage: STRENGTH 200MG, ONE CAPSULE TWICE A DAY (ALSO MENTIONED 2 CAPSULES EACH DAY)
     Route: 048
     Dates: start: 20250531, end: 20250601
  3. LAGEVRIO [Suspect]
     Active Substance: MOLNUPIRAVIR
     Indication: COVID-19 treatment
     Dosage: STRENGTH 200MG, 4 CAPSULES, TWICE A DAY
     Route: 048
     Dates: start: 20250602, end: 20250603
  4. LAGEVRIO [Suspect]
     Active Substance: MOLNUPIRAVIR
     Indication: COVID-19 treatment
     Route: 048
     Dates: start: 20250604, end: 20250604

REACTIONS (2)
  - SARS-CoV-2 test positive [Unknown]
  - Accidental underdose [Unknown]

NARRATIVE: CASE EVENT DATE: 20250530
